FAERS Safety Report 16657116 (Version 1)
Quarter: 2019Q3

REPORT INFORMATION
  Report Type: Spontaneous
  Country: CN (occurrence: CN)
  Receive Date: 20190801
  Receipt Date: 20190801
  Transmission Date: 20191004
  Serious: Yes (Death)
  Sender: FDA-Public Use
  Company Number: CN-PFIZER INC-2019325626

PATIENT
  Age: 47 Year
  Sex: Female

DRUGS (2)
  1. IBRANCE [Suspect]
     Active Substance: PALBOCICLIB
     Indication: BREAST CANCER
     Dosage: 125 MG, QD
     Route: 048
     Dates: start: 20190710
  2. CATEQUENTINIB. [Concomitant]
     Active Substance: CATEQUENTINIB
     Dosage: UNK
     Dates: start: 20190710

REACTIONS (1)
  - Death [Fatal]

NARRATIVE: CASE EVENT DATE: 20190720
